FAERS Safety Report 24417292 (Version 1)
Quarter: 2024Q4

REPORT INFORMATION
  Report Type: Spontaneous
  Country: US (occurrence: US)
  Receive Date: 20241009
  Receipt Date: 20241009
  Transmission Date: 20250115
  Serious: Yes (Life-Threatening, Hospitalization)
  Sender: HIKMA
  Company Number: None

PATIENT

DRUGS (1)
  1. CALCIUM CARBONATE [Suspect]
     Active Substance: CALCIUM CARBONATE
     Indication: Product used for unknown indication
     Dosage: UNK, OVERDOSE/SIGNIFICANT INGESTION SHORTLY BEFORE PRESENTATION
     Route: 048

REACTIONS (12)
  - Pancreatitis acute [Recovered/Resolved]
  - Milk-alkali syndrome [Recovered/Resolved]
  - Thrombocytopenia [Recovered/Resolved]
  - Obstructive airways disorder [Recovered/Resolved]
  - Loss of consciousness [Recovered/Resolved]
  - Overdose [Recovered/Resolved]
  - Anaemia [Recovered/Resolved]
  - Hypertransaminasaemia [Recovered/Resolved]
  - Disseminated intravascular coagulation [Recovered/Resolved]
  - Metabolic alkalosis [Recovered/Resolved]
  - Metabolic acidosis [Recovered/Resolved]
  - Mental status changes [Recovered/Resolved]
